FAERS Safety Report 7928989-4 (Version None)
Quarter: 2011Q4

REPORT INFORMATION
  Report Type: 
  Country: None (occurrence: None)
  Receive Date: 20111118
  Receipt Date: 20110330
  Transmission Date: 20120403
  Serious: No
  Sender: FDA-Public Use
  Company Number: US-AMGEN-TCS418095

PATIENT
  Sex: Female

DRUGS (1)
  1. ENBREL [Suspect]
     Indication: RHEUMATOID ARTHRITIS
     Dosage: 50 MG, QWK
     Dates: start: 20090429

REACTIONS (6)
  - RASH [None]
  - RASH PAPULAR [None]
  - DRUG INTERACTION [None]
  - INJECTION SITE ERYTHEMA [None]
  - ADVERSE DRUG REACTION [None]
  - INJECTION SITE REACTION [None]
